FAERS Safety Report 17931833 (Version 6)
Quarter: 2023Q2

REPORT INFORMATION
  Report Type: Report from Study
  Country: NL (occurrence: NL)
  Receive Date: 20200623
  Receipt Date: 20230529
  Transmission Date: 20230721
  Serious: Yes (Life-Threatening, Hospitalization, Disabling, Other)
  Sender: FDA-Public Use
  Company Number: NL-002147023-NVSC2019NL019496

PATIENT

DRUGS (8)
  1. DICLOFENAC [Suspect]
     Active Substance: DICLOFENAC
     Indication: Pain
     Dosage: 50 MG
     Route: 065
     Dates: start: 20191010, end: 20191025
  2. DICLOFENAC [Suspect]
     Active Substance: DICLOFENAC
     Indication: Amputation
     Dosage: UNK UNK, QD (3 (50), QD)
     Route: 065
     Dates: end: 20200504
  3. ASCIMINIB [Suspect]
     Active Substance: ASCIMINIB
     Indication: Philadelphia positive chronic myeloid leukaemia
     Dosage: 400 MG, QD
     Route: 048
     Dates: start: 20190926
  4. ASCIMINIB [Suspect]
     Active Substance: ASCIMINIB
     Dosage: 400 MG, QD
     Route: 048
     Dates: start: 20191025
  5. LOSARTAN [Suspect]
     Active Substance: LOSARTAN
     Indication: Hypertension
     Dosage: 50 MG
     Route: 065
     Dates: start: 20190814, end: 20191025
  6. LOSARTAN [Suspect]
     Active Substance: LOSARTAN
     Dosage: 50 MG
     Route: 065
     Dates: end: 20200504
  7. METFORMIN [Concomitant]
     Active Substance: METFORMIN HYDROCHLORIDE
     Indication: Diabetes mellitus
     Dosage: UNK (1 (3000)MG)
     Route: 065
     Dates: end: 20200504
  8. DAPAGLIFLOZIN [Concomitant]
     Active Substance: DAPAGLIFLOZIN
     Indication: Diabetes mellitus
     Dosage: UNK UNK, QD (10 UNK, QD)
     Route: 065
     Dates: end: 20200504

REACTIONS (11)
  - Acute kidney injury [Recovered/Resolved with Sequelae]
  - Pneumonia klebsiella [Recovered/Resolved]
  - Intestinal ischaemia [Recovered/Resolved]
  - Myocardial ischaemia [Recovered/Resolved]
  - Renal failure [Recovered/Resolved]
  - Septic shock [Recovered/Resolved]
  - Dehydration [Unknown]
  - Vomiting [Unknown]
  - Nausea [Unknown]
  - Metabolic acidosis [Recovered/Resolved]
  - Vascular injury [Unknown]

NARRATIVE: CASE EVENT DATE: 20191025
